FAERS Safety Report 9453453 (Version 1)
Quarter: 2013Q3

REPORT INFORMATION
  Report Type: Spontaneous
  Country: GB (occurrence: GB)
  Receive Date: 20130812
  Receipt Date: 20130812
  Transmission Date: 20140515
  Serious: Yes (Other)
  Sender: FDA-Public Use
  Company Number: GB-ROCHE-1260260

PATIENT
  Age: 64 Year
  Sex: Male
  Weight: 75.9 kg

DRUGS (5)
  1. VEMURAFENIB [Suspect]
     Indication: MALIGNANT MELANOMA STAGE IV
     Route: 048
     Dates: start: 20120618, end: 20121001
  2. CANDESARTAN [Concomitant]
     Route: 065
  3. COD LIVER OIL [Concomitant]
  4. FUROSEMIDE [Concomitant]
     Route: 065
  5. VITAMIN B COMPLEX [Concomitant]

REACTIONS (1)
  - Bundle branch block right [Unknown]
